FAERS Safety Report 10418834 (Version 1)
Quarter: 2014Q3

REPORT INFORMATION
  Report Type: Spontaneous
  Country: US (occurrence: US)
  Receive Date: 20140829
  Receipt Date: 20140829
  Transmission Date: 20150326
  Serious: Yes (Hospitalization)
  Sender: FDA-Public Use
  Company Number: US-B.I. PHARMACEUTICALS,INC./RIDGEFIELD-2014-BI-39825BP

PATIENT
  Age: 83 Year
  Sex: Female

DRUGS (1)
  1. PRADAXA [Suspect]
     Active Substance: DABIGATRAN ETEXILATE MESYLATE
     Indication: PRODUCT USED FOR UNKNOWN INDICATION
     Route: 065
     Dates: end: 20130320

REACTIONS (5)
  - Acute respiratory failure [Unknown]
  - Splenic haematoma [Unknown]
  - Haemorrhagic anaemia [Not Recovered/Not Resolved]
  - Shock haemorrhagic [Unknown]
  - Hypotension [Unknown]

NARRATIVE: CASE EVENT DATE: 20130320
